FAERS Safety Report 5531553-8 (Version None)
Quarter: 2007Q4

REPORT INFORMATION
  Report Type: 
  Country: None (occurrence: None)
  Receive Date: 20071203
  Receipt Date: 20071122
  Transmission Date: 20080405
  Serious: Yes (Other)
  Sender: FDA-Public Use
  Company Number: PHHO2007DE18014

PATIENT
  Age: 69 Year
  Sex: Male
  Weight: 70.5 kg

DRUGS (2)
  1. NEXAVAR [Concomitant]
  2. ZOLEDRONIC ACID [Suspect]
     Indication: METASTASES TO BONE
     Dosage: 4MG EVERY 3 WEEKS
     Route: 042
     Dates: start: 20061108, end: 20070904

REACTIONS (3)
  - BONE LESION [None]
  - OSTEONECROSIS [None]
  - PAIN [None]
